FAERS Safety Report 20869472 (Version 2)
Quarter: 2022Q2

REPORT INFORMATION
  Report Type: Report from Study
  Country: US (occurrence: US)
  Receive Date: 20220524
  Receipt Date: 20220527
  Transmission Date: 20220721
  Serious: No
  Sender: FDA-Public Use
  Company Number: US-ABBVIE-22K-163-4406840-00

PATIENT
  Age: 66 Year
  Sex: Male
  Weight: 83.990 kg

DRUGS (5)
  1. RINVOQ [Suspect]
     Active Substance: UPADACITINIB
     Indication: Rheumatoid arthritis
     Route: 048
     Dates: start: 2021, end: 202103
  2. RINVOQ [Suspect]
     Active Substance: UPADACITINIB
     Dosage: START DATE TEXT: LATE MARCH OR EARLY APRIL 2021
     Route: 048
     Dates: start: 2021
  3. MODERNA COVID-19 VACCINE [Concomitant]
     Active Substance: ELASOMERAN
     Indication: COVID-19 immunisation
     Dosage: MODERNA FIRST DOSE
     Route: 030
     Dates: start: 2021, end: 2021
  4. MODERNA COVID-19 VACCINE [Concomitant]
     Active Substance: ELASOMERAN
     Dosage: MODERNA SECOND DOSE
     Route: 030
     Dates: start: 2021, end: 2021
  5. MODERNA COVID-19 VACCINE [Concomitant]
     Active Substance: ELASOMERAN
     Dosage: MODERNA BOOSTER DOSE
     Route: 030
     Dates: start: 2021, end: 2021

REACTIONS (1)
  - COVID-19 [Recovered/Resolved]

NARRATIVE: CASE EVENT DATE: 20210301
